FAERS Safety Report 5906953-4 (Version None)
Quarter: 2008Q4

REPORT INFORMATION
  Report Type: 
  Country: None (occurrence: None)
  Receive Date: 20081003
  Receipt Date: 20080925
  Transmission Date: 20090506
  Serious: Yes (Other)
  Sender: FDA-Public Use
  Company Number: AR-JNJFOC-20080906165

PATIENT
  Age: 71 Year
  Sex: Female

DRUGS (6)
  1. TAVANIC [Suspect]
     Indication: DEVICE RELATED INFECTION
     Route: 048
  2. ANTIBIOTICS NOS [Concomitant]
     Route: 048
  3. ANTIDEPRESSANTS NOS [Concomitant]
     Route: 048
  4. HIGH CHOLESTROL MEDICATION NOS [Concomitant]
     Route: 048
  5. ANTI HYPERTENSIVE AGENT [Concomitant]
     Route: 048
  6. HYPOGLYCEMIC AGENT [Concomitant]
     Route: 048

REACTIONS (3)
  - HYPOTENSION [None]
  - MUCOSAL INFLAMMATION [None]
  - URTICARIA [None]
